FAERS Safety Report 16630565 (Version 1)
Quarter: 2019Q3

REPORT INFORMATION
  Report Type: Report from Study
  Country: CZ (occurrence: CZ)
  Receive Date: 20190725
  Receipt Date: 20190725
  Transmission Date: 20191004
  Serious: Yes (Hospitalization)
  Sender: FDA-Public Use
  Company Number: CZ-UCBSA-052183

PATIENT
  Age: 65 Year
  Sex: Male
  Weight: 61 kg

DRUGS (1)
  1. CERTOLIZUMAB PEGOL VS PLACEBO [Suspect]
     Active Substance: CERTOLIZUMAB PEGOL
     Indication: PSORIATIC ARTHROPATHY
     Dosage: BLINDED DOSE
     Route: 058
     Dates: start: 20110420, end: 20120212

REACTIONS (1)
  - Synovial rupture [Recovered/Resolved]

NARRATIVE: CASE EVENT DATE: 201202
